FAERS Safety Report 15907768 (Version 2)
Quarter: 2020Q4

REPORT INFORMATION
  Report Type: Report from Study
  Country: IN (occurrence: IN)
  Receive Date: 20190204
  Receipt Date: 20201015
  Transmission Date: 20210113
  Serious: Yes (Death, Other)
  Sender: FDA-Public Use
  Company Number: PHHY2019IN023581

PATIENT
  Age: 76 Year
  Sex: Female

DRUGS (1)
  1. GLIVEC [Suspect]
     Active Substance: IMATINIB MESYLATE
     Indication: GASTROINTESTINAL STROMAL TUMOUR
     Dosage: 600 MG (1 X 400 MG + 2 X 100 MG TABLETS)
     Route: 065

REACTIONS (2)
  - Kidney infection [Unknown]
  - Death [Fatal]

NARRATIVE: CASE EVENT DATE: 202003
